FAERS Safety Report 4574193-X (Version None)
Quarter: 2005Q1

REPORT INFORMATION
  Report Type: 
  Country: None (occurrence: None)
  Receive Date: 20050208
  Receipt Date: 20050127
  Transmission Date: 20050727
  Serious: Yes (Death)
  Sender: FDA-Public Use
  Company Number: DE-BRISTOL-MYERS SQUIBB COMPANY-12841565

PATIENT
  Age: 41 Year
  Sex: Male

DRUGS (2)
  1. ABILIFY [Suspect]
     Indication: SCHIZOAFFECTIVE DISORDER
     Dosage: 10 MG/DAY FROM SEP-2004 TO 24-NOV-2004; INC TO 15 MG/DAY FROM 25-NOV-2004
     Route: 048
     Dates: start: 20040901
  2. RISPERIDONE [Concomitant]
     Indication: PSYCHOTIC DISORDER
     Dosage: 2002, ROUTE/DOSE UNKNOWN, IM UNKNOWN, 2 MG 2003 TO SEP-2004, 1 MG SEP-2004 TO 25 NOV-2004
     Route: 048
     Dates: start: 20020101, end: 20041125

REACTIONS (1)
  - COMPLETED SUICIDE [None]
